FAERS Safety Report 24451135 (Version 1)
Quarter: 2024Q4

REPORT INFORMATION
  Report Type: Report from Study
  Country: IN (occurrence: IN)
  Receive Date: 20241017
  Receipt Date: 20241017
  Transmission Date: 20250114
  Serious: Yes (Other)
  Sender: NOVARTIS
  Company Number: IN-002147023-NVSC2024IN202687

PATIENT
  Age: 52 Year
  Sex: Male
  Weight: 54 kg

DRUGS (1)
  1. BROLUCIZUMAB [Suspect]
     Active Substance: BROLUCIZUMAB
     Indication: Polypoidal choroidal vasculopathy
     Dosage: 0.05 ML
     Route: 031
     Dates: start: 20240821

REACTIONS (3)
  - Endophthalmitis [Recovering/Resolving]
  - Ocular hyperaemia [Recovered/Resolved]
  - Eye pain [Recovered/Resolved]

NARRATIVE: CASE EVENT DATE: 20240915
